FAERS Safety Report 17934293 (Version 3)
Quarter: 2024Q3

REPORT INFORMATION
  Report Type: Report from Study
  Country: JP (occurrence: JP)
  Receive Date: 20200624
  Receipt Date: 20240914
  Transmission Date: 20241016
  Serious: Yes (Hospitalization, Other)
  Sender: TEVA
  Company Number: JP-TEVA-2020-JP-1790157

PATIENT
  Age: 66 Year
  Sex: Male

DRUGS (5)
  1. LEVOFLOXACIN [Suspect]
     Active Substance: LEVOFLOXACIN
     Indication: Product used for unknown indication
     Route: 065
  2. OXALIPLATIN [Suspect]
     Active Substance: OXALIPLATIN
     Indication: Colorectal cancer
     Dosage: DOSAGE TEXT: AS A PART OF PALLIATIVE CHEMOTHERAPY
     Route: 048
  3. CAPECITABINE [Concomitant]
     Active Substance: CAPECITABINE
     Indication: Colorectal cancer
     Dosage: DOSAGE TEXT: AS A PART OF PALLIATIVE CHEMOTHERAPY
     Route: 048
  4. BEVACIZUMAB [Suspect]
     Active Substance: BEVACIZUMAB
     Indication: Lung neoplasm malignant
     Dosage: RECEIVED 1 CYCLE
     Route: 065
  5. BEVACIZUMAB [Suspect]
     Active Substance: BEVACIZUMAB
     Indication: Lung neoplasm malignant
     Dosage: DOSAGE TEXT: AS A PART OF PALLIATIVE CHEMOTHERAPY
     Route: 048

REACTIONS (7)
  - Hypersplenism [Recovered/Resolved]
  - Renal impairment [Unknown]
  - Acute kidney injury [Unknown]
  - Thrombocytopenia [Recovered/Resolved]
  - Proteinuria [Unknown]
  - Splenomegaly [Recovered/Resolved]
  - Renal impairment [Recovering/Resolving]
